FAERS Safety Report 24317635 (Version 2)
Quarter: 2024Q4

REPORT INFORMATION
  Report Type: Spontaneous
  Country: US (occurrence: US)
  Receive Date: 20240913
  Receipt Date: 20241202
  Transmission Date: 20250115
  Serious: No
  Sender: PFIZER
  Company Number: US-PFIZER INC-202400255858

PATIENT
  Age: 77 Year
  Sex: Female

DRUGS (1)
  1. IBRANCE [Suspect]
     Active Substance: PALBOCICLIB
     Indication: Malignant nipple neoplasm female
     Dosage: TAKE 100 MG BY MOUTH DAILY FOR 21 DAYS, THEN 7 DAYS OFF. REPEAT CYCLE EVERY 28 DAYS.
     Route: 048

REACTIONS (1)
  - Illness [Unknown]
